FAERS Safety Report 8131892-0 (Version None)
Quarter: 2012Q1

REPORT INFORMATION
  Report Type: 
  Country: None (occurrence: None)
  Receive Date: 20120207
  Receipt Date: 20120127
  Transmission Date: 20120608
  Serious: Yes (Hospitalization, Other)
  Sender: FDA-Public Use
  Company Number: AUR-APL-2011-06229

PATIENT
  Age: 69 Year

DRUGS (9)
  1. WARFARIN SODIUM [Concomitant]
  2. LEVOTHYROXINE SODIUM [Concomitant]
  3. ATORVASTATIN [Concomitant]
  4. EPLERENONE [Concomitant]
  5. LISINOPRIL [Concomitant]
  6. ALBUTEROL SULFATE/IPRATROPIUM BROMIDE (COMBIVENT) [Suspect]
     Indication: PRODUCT USED FOR UNKNOWN INDICATION
     Dosage: (AS REQUIRED), INHALATION
     Route: 055
  7. BISOPROLOL FUMARATE [Suspect]
     Indication: PRODUCT USED FOR UNKNOWN INDICATION
     Dosage: (10 MG, 1 D),
  8. FUROSEMIDE [Concomitant]
  9. CARVEDILOL [Suspect]
     Indication: PRODUCT USED FOR UNKNOWN INDICATION
     Dosage: (150 MG, 1 D),

REACTIONS (7)
  - CHRONIC OBSTRUCTIVE PULMONARY DISEASE [None]
  - RESPIRATORY DISTRESS [None]
  - BENIGN PROSTATIC HYPERPLASIA [None]
  - URINARY RETENTION [None]
  - RESPIRATORY TRACT INFECTION [None]
  - CONDITION AGGRAVATED [None]
  - CARDIAC FAILURE [None]
